FAERS Safety Report 14620162 (Version 1)
Quarter: 2018Q1

REPORT INFORMATION
  Report Type: Spontaneous
  Country: NO (occurrence: NO)
  Receive Date: 20180309
  Receipt Date: 20180309
  Transmission Date: 20180509
  Serious: Yes (Life-Threatening, Hospitalization, Disabling, Other)
  Sender: FDA-Public Use
  Company Number: NO-EMD SERONO-E2B_90028861

PATIENT
  Age: 32 Year
  Sex: Female
  Weight: 57 kg

DRUGS (1)
  1. GONAL-F [Suspect]
     Active Substance: FOLLITROPIN
     Indication: INFERTILITY TESTS
     Dates: start: 20180101, end: 20180114

REACTIONS (8)
  - Hot flush [Recovering/Resolving]
  - Amnesia [Recovered/Resolved with Sequelae]
  - Dyspnoea [Recovered/Resolved with Sequelae]
  - Aphasia [Recovered/Resolved with Sequelae]
  - Paraesthesia [Recovered/Resolved]
  - Headache [Recovered/Resolved with Sequelae]
  - Insomnia [Recovered/Resolved]
  - Paralysis [Recovered/Resolved]

NARRATIVE: CASE EVENT DATE: 20180101
